FAERS Safety Report 6442383-7 (Version None)
Quarter: 2009Q4

REPORT INFORMATION
  Report Type: 
  Country: None (occurrence: None)
  Receive Date: 20091112
  Receipt Date: 20091102
  Transmission Date: 20100525
  Serious: Yes (Hospitalization)
  Sender: FDA-Public Use
  Company Number: 2009AL007001

PATIENT
  Age: 70 Year
  Sex: Male

DRUGS (28)
  1. FEVERALL [Suspect]
  2. PROMETHAZINE HCL [Suspect]
  3. RANITIDINE [Suspect]
  4. ALPRAZOLAM [Suspect]
  5. MELOXICAM [Suspect]
     Indication: MULTIPLE MYELOMA
  6. THALIDOMIDE [Concomitant]
  7. DEXAMETHASONE TAB [Concomitant]
  8. HYDROCODONE [Concomitant]
  9. OMEPRAZOLE [Concomitant]
  10. LIDOCAINE [Concomitant]
  11. POLYETHYLENE GLYCOL 3350 SOLUBLE POWDER LAXATIVE [Concomitant]
  12. TESTOSTERONE ENANTHATE INJECTIONS [Concomitant]
  13. PAMIDRONATE SODIUM [Concomitant]
  14. CEFEPIME [Concomitant]
  15. VANCOMYCIN [Concomitant]
  16. FLUCONAZOLE [Concomitant]
  17. MORPHINE SULFATE [Concomitant]
  18. NALOXONE HYDROCHLORIDE [Concomitant]
  19. PANTOPRAZOLE SODIUM [Concomitant]
  20. DIPHENHYDRAMINE HYDROCHLORIDE [Concomitant]
  21. HEPARIN SODIUM [Concomitant]
  22. ZOLPIDEM TARTRATE [Concomitant]
  23. AMIODARONE HYDROCHLORIDE [Concomitant]
  24. FILGRASTIM [Concomitant]
  25. MEROPENEM [Concomitant]
  26. DAPTOMYCIN [Concomitant]
  27. TOBRAMYCIN [Concomitant]
  28. CASPOFUNGIN ACETATE [Concomitant]

REACTIONS (12)
  - ACUTE GENERALISED EXANTHEMATOUS PUSTULOSIS [None]
  - ATRIAL FIBRILLATION [None]
  - BACK PAIN [None]
  - BLOOD CULTURE POSITIVE [None]
  - FEBRILE NEUTROPENIA [None]
  - HAEMATOCRIT DECREASED [None]
  - HAEMOGLOBIN DECREASED [None]
  - ORAL CANDIDIASIS [None]
  - PHARYNGITIS [None]
  - PSEUDOMONAS INFECTION [None]
  - STREPTOCOCCAL INFECTION [None]
  - WHITE BLOOD CELL COUNT DECREASED [None]
